FAERS Safety Report 11689282 (Version 1)
Quarter: 2015Q4

REPORT INFORMATION
  Report Type: Spontaneous
  Country: US (occurrence: US)
  Receive Date: 20151102
  Receipt Date: 20151102
  Transmission Date: 20160304
  Serious: Yes (Other)
  Sender: FDA-Public Use
  Company Number: US-ASTRAZENECA-2015SF05613

PATIENT
  Sex: Female

DRUGS (10)
  1. METFORMIN [Concomitant]
     Active Substance: METFORMIN HYDROCHLORIDE
  2. EVEROLIMUS [Concomitant]
     Active Substance: EVEROLIMUS
  3. ALLOPURINOL. [Concomitant]
     Active Substance: ALLOPURINOL
  4. VITAMIN D3 [Concomitant]
     Active Substance: CHOLECALCIFEROL
  5. EXEMESTANE. [Concomitant]
     Active Substance: EXEMESTANE
  6. ATENOLOL. [Concomitant]
     Active Substance: ATENOLOL
  7. CHLORTHALIDONE. [Concomitant]
     Active Substance: CHLORTHALIDONE
  8. FULVESTRANT [Suspect]
     Active Substance: FULVESTRANT
     Route: 030
  9. LETROZOLE. [Concomitant]
     Active Substance: LETROZOLE
  10. CAPECITABINE. [Concomitant]
     Active Substance: CAPECITABINE

REACTIONS (2)
  - Malignant neoplasm progression [Unknown]
  - Hepatic lesion [Unknown]
